FAERS Safety Report 6647531-1 (Version None)
Quarter: 2010Q1

REPORT INFORMATION
  Report Type: 
  Country: None (occurrence: None)
  Receive Date: 20100323
  Receipt Date: 20100323
  Transmission Date: 20100710
  Serious: No
  Sender: FDA-Public Use
  Company Number: None

PATIENT
  Age: 59 Year
  Sex: Male
  Weight: 55.45 kg

DRUGS (1)
  1. PIPERACILLIN AND TAZOBACTAM [Suspect]
     Dosage: 2.25 GM TID IV
     Route: 042
     Dates: start: 20090221, end: 20090226

REACTIONS (1)
  - BLOOD CREATININE INCREASED [None]
